FAERS Safety Report 7530343-4 (Version None)
Quarter: 2011Q2

REPORT INFORMATION
  Report Type: 
  Country: None (occurrence: None)
  Receive Date: 20110607
  Receipt Date: 20110525
  Transmission Date: 20111010
  Serious: Yes (Other)
  Sender: FDA-Public Use
  Company Number: DE-UCBSA-033802

PATIENT
  Age: 73 Year
  Sex: Male

DRUGS (2)
  1. CHEMOTHERAPY [Suspect]
  2. KEPPRA [Suspect]
     Dates: start: 20110101

REACTIONS (1)
  - RENAL FAILURE ACUTE [None]
